FAERS Safety Report 6818768-3 (Version None)
Quarter: 2010Q3

REPORT INFORMATION
  Report Type: 
  Country: None (occurrence: None)
  Receive Date: 20100706
  Receipt Date: 20100622
  Transmission Date: 20110219
  Serious: Yes (Other)
  Sender: FDA-Public Use
  Company Number: US-MYLANLABS-2010S1011025

PATIENT
  Age: 19 Year
  Sex: Female
  Weight: 70 kg

DRUGS (5)
  1. FENTANYL [Suspect]
     Indication: GENERAL ANAESTHESIA
     Route: 042
  2. PROPOFOL [Suspect]
     Indication: INDUCTION OF ANAESTHESIA
     Route: 042
  3. MIDAZOLAM HCL [Concomitant]
     Indication: GENERAL ANAESTHESIA
     Route: 042
  4. SEVOFLURANE [Concomitant]
     Indication: GENERAL ANAESTHESIA
     Route: 065
  5. SUCCINYLCHOLINE CHLORIDE [Concomitant]
     Indication: HYPOTONIA
     Route: 065

REACTIONS (1)
  - CARDIAC FAILURE ACUTE [None]
